FAERS Safety Report 7146347-X (Version None)
Quarter: 2010Q4

REPORT INFORMATION
  Report Type: 
  Country: None (occurrence: None)
  Receive Date: 20101208
  Receipt Date: 20101203
  Transmission Date: 20110411
  Serious: Yes (Other)
  Sender: FDA-Public Use
  Company Number: US-PFIZER INC-2010164118

PATIENT
  Sex: Male

DRUGS (7)
  1. TOVIAZ [Suspect]
     Indication: HYPERTONIC BLADDER
     Dosage: UNK
  2. ELMIRON [Concomitant]
     Dosage: 100 MG, UNK
  3. HYZAAR [Concomitant]
     Dosage: UNK
  4. HYTRIN [Concomitant]
     Dosage: UNK
  5. PRAVASTATIN [Concomitant]
     Dosage: UNK
  6. METFORMIN [Concomitant]
     Dosage: UNK
  7. CHLORAMPHENICOL [Concomitant]
     Dosage: UNK

REACTIONS (1)
  - HYPERTENSION [None]
